FAERS Safety Report 15278158 (Version 1)
Quarter: 2018Q3

REPORT INFORMATION
  Report Type: Spontaneous
  Country: US (occurrence: US)
  Receive Date: 20180814
  Receipt Date: 20180814
  Transmission Date: 20181010
  Serious: No
  Sender: FDA-Public Use
  Company Number: US-SA-2018SA214194

PATIENT
  Age: 75 Year
  Sex: Male

DRUGS (1)
  1. NASACORT ALLERGY 24HR [Suspect]
     Active Substance: TRIAMCINOLONE ACETONIDE
     Indication: SINUS DISORDER
     Dosage: 1 SPRAY/NOSTRIL, QD
     Route: 065
     Dates: start: 201805, end: 20180803

REACTIONS (2)
  - Expired product administered [Unknown]
  - Dizziness [Unknown]
